FAERS Safety Report 23903437 (Version 3)
Quarter: 2025Q2

REPORT INFORMATION
  Report Type: Report from Study
  Country: PK (occurrence: PK)
  Receive Date: 20240527
  Receipt Date: 20250626
  Transmission Date: 20250717
  Serious: Yes (Other)
  Sender: ROCHE
  Company Number: PK-ROCHE-3537965

PATIENT
  Age: 37 Year
  Sex: Male
  Weight: 63.0 kg

DRUGS (5)
  1. AVASTIN [Suspect]
     Active Substance: BEVACIZUMAB
     Indication: Glioblastoma
     Dosage: 18 CYCLES?DOSE WAS DECREASED FROM 770 MG TO 630 MG
     Route: 042
     Dates: start: 20221203
  2. AVASTIN [Suspect]
     Active Substance: BEVACIZUMAB
     Route: 042
  3. AVASTIN [Suspect]
     Active Substance: BEVACIZUMAB
     Route: 042
  4. AVASTIN [Suspect]
     Active Substance: BEVACIZUMAB
     Route: 042
  5. AVASTIN [Suspect]
     Active Substance: BEVACIZUMAB
     Route: 042

REACTIONS (3)
  - Weight decreased [Unknown]
  - Optic neuritis [Unknown]
  - Blindness [Unknown]

NARRATIVE: CASE EVENT DATE: 20240330
